FAERS Safety Report 11136941 (Version 2)
Quarter: 2015Q2

REPORT INFORMATION
  Report Type: Spontaneous
  Country: DE (occurrence: DE)
  Receive Date: 20150526
  Receipt Date: 20150608
  Transmission Date: 20150821
  Serious: Yes (Hospitalization)
  Sender: FDA-Public Use
  Company Number: DE-OTSUKA-2015_001172

PATIENT
  Age: 61 Year
  Sex: Female

DRUGS (6)
  1. JATROSOM                           /00071702/ [Suspect]
     Active Substance: TRANYLCYPROMINE SULFATE
     Dosage: 30 MG, QD
     Route: 048
     Dates: start: 20150109
  2. ARIPIPRAZOLE. [Suspect]
     Active Substance: ARIPIPRAZOLE
     Indication: PRODUCT USED FOR UNKNOWN INDICATION
     Dosage: 10 MG, QD
     Route: 048
     Dates: start: 2013
  3. JATROSOM /00071702/ [Suspect]
     Active Substance: TRANYLCYPROMINE SULFATE
     Indication: PRODUCT USED FOR UNKNOWN INDICATION
     Dosage: 60 MG, QD
     Route: 048
     Dates: end: 20150106
  4. JATROSOM                           /00071702/ [Suspect]
     Active Substance: TRANYLCYPROMINE SULFATE
     Dosage: 20 MG, QD
     Route: 048
     Dates: start: 20150111, end: 20150112
  5. TREVILOR RETARD [Suspect]
     Active Substance: VENLAFAXINE HYDROCHLORIDE
     Indication: PRODUCT USED FOR UNKNOWN INDICATION
     Dosage: 75 MG, QD
     Route: 048
     Dates: start: 20150126, end: 20150127
  6. JATROSOM                           /00071702/ [Suspect]
     Active Substance: TRANYLCYPROMINE SULFATE
     Dosage: 40 MG, QD
     Route: 048
     Dates: start: 20150107

REACTIONS (1)
  - Serotonin syndrome [Recovered/Resolved]

NARRATIVE: CASE EVENT DATE: 20150126
